FAERS Safety Report 8969310 (Version 1)
Quarter: 2012Q4

REPORT INFORMATION
  Report Type: 
  Country: GB (occurrence: GB)
  Receive Date: 20121217
  Receipt Date: 20121217
  Transmission Date: 20130627
  Serious: Yes (Hospitalization)
  Sender: FDA-Public Use
  Company Number: PHHY2012GB115029

PATIENT
  Age: 65 Year
  Sex: Male

DRUGS (5)
  1. OMEPRAZOLE [Suspect]
     Dosage: 40 mg, QD
     Route: 042
     Dates: start: 20110406
  2. OMEPRAZOLE [Suspect]
     Dosage: 40 mg, BID
     Route: 042
  3. TIGECYCLINE [Suspect]
     Route: 042
  4. GENTAMICIN [Concomitant]
     Route: 042
  5. FLUCONAZOLE [Concomitant]

REACTIONS (5)
  - Pathogen resistance [Recovering/Resolving]
  - Abdominal sepsis [Recovering/Resolving]
  - Inflammatory marker increased [Recovering/Resolving]
  - Pyrexia [Recovering/Resolving]
  - Bacterial infection [Recovering/Resolving]
